FAERS Safety Report 9607189 (Version 1)
Quarter: 2013Q4

REPORT INFORMATION
  Report Type: Spontaneous
  Country: US (occurrence: US)
  Receive Date: 20131009
  Receipt Date: 20131009
  Transmission Date: 20140711
  Serious: No
  Sender: FDA-Public Use
  Company Number: US-BIOGENIDEC-2013BI093610

PATIENT
  Sex: Female

DRUGS (1)
  1. AVONEX [Suspect]
     Indication: MULTIPLE SCLEROSIS
     Route: 030
     Dates: start: 20080828

REACTIONS (5)
  - Pyrexia [Recovered/Resolved]
  - Headache [Recovered/Resolved]
  - Pain [Recovered/Resolved]
  - Nausea [Unknown]
  - Diarrhoea [Unknown]
